FAERS Safety Report 8476760-X (Version None)
Quarter: 2012Q2

REPORT INFORMATION
  Report Type: 
  Country: None (occurrence: None)
  Receive Date: 20120628
  Receipt Date: 20120622
  Transmission Date: 20120825
  Serious: Yes (Hospitalization, Disabling, Other)
  Sender: FDA-Public Use
  Company Number: US-MERCK-1110USA01563

PATIENT
  Age: 43 Year
  Sex: Female

DRUGS (2)
  1. FOSAMAX [Suspect]
     Route: 048
     Dates: end: 20100101
  2. FOSAMAX [Suspect]
     Indication: OSTEOPENIA
     Route: 048
     Dates: end: 20100101

REACTIONS (66)
  - ABDOMINAL PAIN UPPER [None]
  - MITRAL VALVE INCOMPETENCE [None]
  - SPINAL OSTEOARTHRITIS [None]
  - WEIGHT INCREASED [None]
  - INSOMNIA [None]
  - INTERVERTEBRAL DISC DISORDER [None]
  - PAIN IN EXTREMITY [None]
  - FEMUR FRACTURE [None]
  - APPENDIX DISORDER [None]
  - UTERINE DISORDER [None]
  - FALL [None]
  - NASAL POLYPS [None]
  - TRICUSPID VALVE INCOMPETENCE [None]
  - MUSCLE STRAIN [None]
  - OVARIAN CYST [None]
  - OSTEOPOROSIS [None]
  - OSTEOMA [None]
  - THYROID DISORDER [None]
  - FACE OEDEMA [None]
  - PERONEAL NERVE PALSY [None]
  - ASTHENIA [None]
  - JOINT INJURY [None]
  - MUSCULOSKELETAL PAIN [None]
  - ADVERSE EVENT [None]
  - CONVULSION [None]
  - RESPIRATORY FAILURE [None]
  - GAIT DISTURBANCE [None]
  - ATTENTION DEFICIT/HYPERACTIVITY DISORDER [None]
  - FATIGUE [None]
  - OSTEOARTHRITIS [None]
  - DYSARTHRIA [None]
  - RADIUS FRACTURE [None]
  - PALPITATIONS [None]
  - DIARRHOEA [None]
  - OEDEMA PERIPHERAL [None]
  - MEDIASTINAL DISORDER [None]
  - LUMBAR RADICULOPATHY [None]
  - UVEITIS [None]
  - HYPOTHYROIDISM [None]
  - HYPERTENSION [None]
  - HAEMOGLOBIN ABNORMAL [None]
  - BACK PAIN [None]
  - PAIN [None]
  - WRIST FRACTURE [None]
  - TONSILLAR DISORDER [None]
  - BREAST CYST [None]
  - BURSITIS [None]
  - TOOTH DISORDER [None]
  - DYSPNOEA EXERTIONAL [None]
  - POST PROCEDURAL HAEMATOMA [None]
  - PNEUMONIA [None]
  - FOOT FRACTURE [None]
  - FRACTURE [None]
  - FOOT DEFORMITY [None]
  - NASAL DISORDER [None]
  - INTERVERTEBRAL DISC PROTRUSION [None]
  - COMPRESSION FRACTURE [None]
  - ANXIETY [None]
  - HERPES ZOSTER [None]
  - ROTATOR CUFF SYNDROME [None]
  - SARCOIDOSIS [None]
  - BLOOD CHOLESTEROL INCREASED [None]
  - MIGRAINE [None]
  - LUNG NEOPLASM [None]
  - DEPRESSION [None]
  - BUNION [None]
